FAERS Safety Report 21571058 (Version 1)
Quarter: 2022Q4

REPORT INFORMATION
  Report Type: Spontaneous
  Country: US (occurrence: US)
  Receive Date: 20221109
  Receipt Date: 20221109
  Transmission Date: 20230113
  Serious: Yes (Other)
  Sender: FDA-Public Use
  Company Number: US-SANOFI-01353102

PATIENT
  Age: 62 Year
  Sex: Female

DRUGS (6)
  1. DUPIXENT [Suspect]
     Active Substance: DUPILUMAB
     Indication: Psoriasis
     Dosage: 300 MG QOW
     Dates: start: 202204
  2. ZIOPTAN [Concomitant]
     Active Substance: TAFLUPROST
  3. DORZOLAMIDE [Concomitant]
     Active Substance: DORZOLAMIDE
  4. PRIMIDONE [Concomitant]
     Active Substance: PRIMIDONE
  5. TOPIRAMATE [Concomitant]
     Active Substance: TOPIRAMATE
  6. PROPRANOLOL [Concomitant]
     Active Substance: PROPRANOLOL HYDROCHLORIDE

REACTIONS (2)
  - Ocular hypertension [Unknown]
  - Product use in unapproved indication [Unknown]

NARRATIVE: CASE EVENT DATE: 20220401
